FAERS Safety Report 19317854 (Version 2)
Quarter: 2025Q4

REPORT INFORMATION
  Report Type: Spontaneous
  Country: EU (occurrence: EU)
  Receive Date: 20210528
  Receipt Date: 20251004
  Transmission Date: 20260117
  Serious: Yes (Other)
  Sender: AUROBINDO
  Company Number: EU-UCBSA-2021022830

PATIENT
  Age: 87 Year
  Sex: Male

DRUGS (7)
  1. LEVETIRACETAM [Suspect]
     Active Substance: LEVETIRACETAM
     Indication: Myoclonus
     Dosage: 1500 MILLIGRAM, ONCE A DAY
     Route: 048
  2. CLONAZEPAM [Concomitant]
     Active Substance: CLONAZEPAM
     Indication: Myoclonus
     Dosage: 0.5 MILLIGRAM, ONCE A DAY
     Route: 048
  3. VALPROATE SODIUM [Concomitant]
     Active Substance: VALPROATE SODIUM
     Indication: Myoclonus
  4. ASPIRIN [Concomitant]
     Active Substance: ASPIRIN
     Indication: Product used for unknown indication
     Dosage: UNK
     Route: 065
  5. METOPROLOL [Concomitant]
     Active Substance: METOPROLOL
     Indication: Product used for unknown indication
     Dosage: UNK
     Route: 065
  6. IRBESARTAN [Concomitant]
     Active Substance: IRBESARTAN
     Indication: Product used for unknown indication
     Dosage: UNK
     Route: 065
  7. TOLTERODINE [Concomitant]
     Active Substance: TOLTERODINE
     Indication: Product used for unknown indication
     Dosage: UNK
     Route: 065

REACTIONS (5)
  - Myoclonus [Unknown]
  - Encephalopathy [Unknown]
  - Delirium [Unknown]
  - Urinary tract infection [Unknown]
  - Product use issue [Unknown]
